FAERS Safety Report 11885045 (Version 2)
Quarter: 2016Q4

REPORT INFORMATION
  Report Type: Spontaneous
  Country: GB (occurrence: GB)
  Receive Date: 20160104
  Receipt Date: 20161229
  Transmission Date: 20170206
  Serious: No
  Sender: FDA-Public Use
  Company Number: GB-EMD SERONO-8061052

PATIENT
  Sex: Female

DRUGS (1)
  1. REBIF [Suspect]
     Active Substance: INTERFERON BETA-1A
     Indication: RELAPSING-REMITTING MULTIPLE SCLEROSIS
     Dates: start: 201310, end: 2015

REACTIONS (1)
  - Drug dose omission [Unknown]

NARRATIVE: CASE EVENT DATE: 2015
